FAERS Safety Report 23559605 (Version 2)
Quarter: 2024Q1

REPORT INFORMATION
  Report Type: Spontaneous
  Country: PL (occurrence: PL)
  Receive Date: 20240223
  Receipt Date: 20240305
  Transmission Date: 20240410
  Serious: Yes (Hospitalization, Other)
  Sender: FDA-Public Use
  Company Number: PL-PFM-2024-01099

PATIENT
  Age: 71 Year
  Sex: Female
  Weight: 85 kg

DRUGS (3)
  1. BRAFTOVI [Suspect]
     Active Substance: ENCORAFENIB
     Indication: Malignant melanoma
     Dosage: 450 MG, UNK, CONCENTRATION 75 MG
     Route: 048
     Dates: start: 20230923, end: 20240110
  2. BRAFTOVI [Suspect]
     Active Substance: ENCORAFENIB
     Dosage: 450 MG, UNK, CONCENTRATION 50 MG
     Route: 048
     Dates: start: 20230923, end: 20240110
  3. MEKTOVI [Suspect]
     Active Substance: BINIMETINIB
     Indication: Malignant melanoma
     Dosage: 45 MG, BID (2/DAY)
     Route: 048
     Dates: start: 20230923, end: 20240110

REACTIONS (3)
  - Altered state of consciousness [Unknown]
  - Epilepsy [Unknown]
  - Headache [Unknown]

NARRATIVE: CASE EVENT DATE: 20240118
